FAERS Safety Report 6472959-2 (Version None)
Quarter: 2009Q4

REPORT INFORMATION
  Report Type: 
  Country: None (occurrence: None)
  Receive Date: 20091204
  Receipt Date: 20091124
  Transmission Date: 20100525
  Serious: Yes (Hospitalization, Other)
  Sender: FDA-Public Use
  Company Number: GB-RANBAXY-2009RR-29107

PATIENT
  Age: 71 Year
  Sex: Female

DRUGS (10)
  1. ALLOPURINOL [Suspect]
     Indication: GOUT
     Route: 048
  2. ASPIRIN [Suspect]
  3. ATENOLOL [Suspect]
     Route: 048
  4. CLOPIDOGREL [Suspect]
  5. DOXAZOSIN [Suspect]
  6. GLICLAZIDE [Suspect]
     Indication: DIABETES MELLITUS
     Dosage: 60 MG, BID
  7. IRBESARTAN [Suspect]
  8. METFORMIN HCL [Suspect]
     Indication: DIABETES MELLITUS
     Dosage: 1 G, BID
  9. PERINDOPRIL [Suspect]
     Route: 048
  10. BENDROFLUMETHIAZIDE [Suspect]

REACTIONS (4)
  - DRUG INTERACTION [None]
  - HYPOGLYCAEMIA [None]
  - LACTIC ACIDOSIS [None]
  - RENAL FAILURE ACUTE [None]
